FAERS Safety Report 17875320 (Version 1)
Quarter: 2020Q2

REPORT INFORMATION
  Report Type: Spontaneous
  Country: US (occurrence: US)
  Receive Date: 20200608
  Receipt Date: 20200608
  Transmission Date: 20200714
  Serious: No
  Sender: FDA-Public Use
  Company Number: None

PATIENT
  Age: 65 Year
  Sex: Male

DRUGS (1)
  1. ATORVASTATIN (ATORVASTATIN CA 80MG TAB) [Suspect]
     Active Substance: ATORVASTATIN
     Indication: HYPERLIPIDAEMIA
     Dosage: ?          OTHER DOSE:1 TAB;?
     Route: 048
     Dates: start: 20160414, end: 20200227

REACTIONS (2)
  - Rhabdomyolysis [None]
  - Hepatic enzyme increased [None]

NARRATIVE: CASE EVENT DATE: 20200220
